FAERS Safety Report 7691034-2 (Version None)
Quarter: 2011Q3

REPORT INFORMATION
  Report Type: 
  Country: None (occurrence: None)
  Receive Date: 20110818
  Receipt Date: 20110808
  Transmission Date: 20111222
  Serious: Yes (Death, Other)
  Sender: FDA-Public Use
  Company Number: US-ROCHE-795937

PATIENT

DRUGS (3)
  1. CAPECITABINE [Suspect]
     Route: 048
  2. BEVACIZUMAB [Suspect]
     Dosage: FORM: INFUSION.
     Route: 042
  3. OXALIPLATIN [Suspect]
     Dosage: FORM : INFUSION. GIVEN OVER 2 HOURS.
     Route: 042

REACTIONS (13)
  - DIARRHOEA [None]
  - DECREASED APPETITE [None]
  - VOMITING [None]
  - PALMAR-PLANTAR ERYTHRODYSAESTHESIA SYNDROME [None]
  - GASTRIC PERFORATION [None]
  - HYPERGLYCAEMIA [None]
  - PERIPHERAL SENSORY NEUROPATHY [None]
  - SEPSIS [None]
  - NAUSEA [None]
  - ANAEMIA [None]
  - ATRIAL FIBRILLATION [None]
  - OEDEMA [None]
  - FATIGUE [None]
